FAERS Safety Report 22188495 (Version 1)
Quarter: 2023Q2

REPORT INFORMATION
  Report Type: Spontaneous
  Country: DE (occurrence: DE)
  Receive Date: 20230409
  Receipt Date: 20230409
  Transmission Date: 20230722
  Serious: Yes (Other)
  Sender: FDA-Public Use
  Company Number: DE-BoehringerIngelheim-2023-BI-230329

PATIENT
  Age: 53 Year
  Sex: Female

DRUGS (5)
  1. NINTEDANIB ESYLATE [Suspect]
     Active Substance: NINTEDANIB ESYLATE
     Indication: Scleroderma
  2. MYCOPHENOLATE MOFETIL [Concomitant]
     Active Substance: MYCOPHENOLATE MOFETIL
     Indication: Systemic scleroderma
  3. BOSENTAN [Concomitant]
     Active Substance: BOSENTAN
     Indication: Pulmonary hypertension
  4. ILOPROST TROMETHAMINE [Concomitant]
     Active Substance: ILOPROST TROMETHAMINE
     Indication: Peripheral embolism
  5. Nifedipidin [Concomitant]
     Indication: Product used for unknown indication

REACTIONS (1)
  - Condition aggravated [Unknown]
